FAERS Safety Report 4773340-4 (Version None)
Quarter: 2005Q3

REPORT INFORMATION
  Report Type: 
  Country: None (occurrence: None)
  Receive Date: 20050916
  Receipt Date: 20050912
  Transmission Date: 20060218
  Serious: Yes (Hospitalization, Other)
  Sender: FDA-Public Use
  Company Number: 2005108694

PATIENT
  Age: 57 Year
  Sex: Male

DRUGS (7)
  1. LIPITOR [Suspect]
     Indication: ILL-DEFINED DISORDER
     Dosage: 20 MG (20 MG, 1 IN 1 D)
  2. GLYBURIDE [Concomitant]
  3. ATENOLOL [Concomitant]
  4. ACTOS [Concomitant]
  5. LISINOPRIL [Concomitant]
  6. POTASSIUM (POTASSIUM) [Concomitant]
  7. ASPIRIN [Concomitant]

REACTIONS (3)
  - DEEP VEIN THROMBOSIS [None]
  - FIBRIN D DIMER INCREASED [None]
  - RHABDOMYOLYSIS [None]
